FAERS Safety Report 19053655 (Version 2)
Quarter: 2021Q2

REPORT INFORMATION
  Report Type: Report from Study
  Country: None (occurrence: CA)
  Receive Date: 20210324
  Receipt Date: 20210422
  Transmission Date: 20210717
  Serious: Yes (Other)
  Sender: FDA-Public Use
  Company Number: CA-ABBVIE-21K-028-3826485-00

PATIENT
  Sex: Male

DRUGS (1)
  1. HUMIRA [Suspect]
     Active Substance: ADALIMUMAB
     Indication: ARTHRITIS
     Route: 058
     Dates: start: 20180711

REACTIONS (5)
  - Dupuytren^s contracture [Recovered/Resolved]
  - Skin mass [Not Recovered/Not Resolved]
  - Muscle spasms [Unknown]
  - Dupuytren^s contracture [Recovered/Resolved]
  - Dupuytren^s contracture [Unknown]

NARRATIVE: CASE EVENT DATE: 2019
